FAERS Safety Report 5315961-6 (Version None)
Quarter: 2007Q2

REPORT INFORMATION
  Report Type: 
  Country: None (occurrence: None)
  Receive Date: 20070503
  Receipt Date: 20070423
  Transmission Date: 20071010
  Serious: Yes (Hospitalization, Other)
  Sender: FDA-Public Use
  Company Number: US-PFIZER INC-2007033052

PATIENT
  Sex: Female

DRUGS (1)
  1. ESTRING [Suspect]

REACTIONS (2)
  - FUNGAL INFECTION [None]
  - SURGERY [None]
